FAERS Safety Report 7950515-4 (Version None)
Quarter: 2011Q4

REPORT INFORMATION
  Report Type: 
  Country: None (occurrence: None)
  Receive Date: 20111130
  Receipt Date: 20111121
  Transmission Date: 20120403
  Serious: Yes (Hospitalization)
  Sender: FDA-Public Use
  Company Number: AU-ASTRAZENECA-2011SE65559

PATIENT
  Age: 80 Year
  Sex: Female

DRUGS (2)
  1. ARIMIDEX [Suspect]
     Route: 048
     Dates: start: 20100101
  2. FUROSEMIDE [Concomitant]

REACTIONS (5)
  - DECREASED APPETITE [None]
  - BLOOD POTASSIUM DECREASED [None]
  - VIRAL INFECTION [None]
  - COUGH [None]
  - FATIGUE [None]
